FAERS Safety Report 5604130-8 (Version None)
Quarter: 2008Q1

REPORT INFORMATION
  Report Type: 
  Country: None (occurrence: None)
  Receive Date: 20080128
  Receipt Date: 20080122
  Transmission Date: 20080703
  Serious: Yes (Other)
  Sender: FDA-Public Use
  Company Number: PHFR2008GB00635

PATIENT
  Age: 21 Year
  Sex: Female

DRUGS (5)
  1. TEGRETOL [Suspect]
     Indication: EPILEPSY
     Route: 048
     Dates: start: 19940101
  2. LYRICA [Suspect]
     Indication: EPILEPSY
     Dosage: 75 MG, BID
     Route: 048
     Dates: start: 20050510
  3. LYRICA [Suspect]
     Dosage: 75 MG, QD
     Route: 048
  4. PHENYTOIN SODIUM [Suspect]
     Route: 065
  5. KEPPRA [Concomitant]
     Indication: EPILEPSY
     Route: 048

REACTIONS (5)
  - ANTICONVULSANT DRUG LEVEL INCREASED [None]
  - BALANCE DISORDER [None]
  - DIPLOPIA [None]
  - DIZZINESS [None]
  - EPILEPSY [None]
